FAERS Safety Report 6740322-2 (Version None)
Quarter: 2010Q2

REPORT INFORMATION
  Report Type: 
  Country: None (occurrence: None)
  Receive Date: 20100521
  Receipt Date: 20100507
  Transmission Date: 20101027
  Serious: Yes (Other)
  Sender: FDA-Public Use
  Company Number: JP-1181929

PATIENT
  Age: 75 Year
  Sex: Male

DRUGS (4)
  1. TRAVATAN Z [Suspect]
     Indication: INTRAOCULAR PRESSURE INCREASED
     Dosage: OPHTHALMIC
     Route: 047
     Dates: start: 20100316, end: 20100324
  2. BETAMETHASONE [Concomitant]
  3. NSAID'S (NSAID'S) [Concomitant]
  4. ANTIBACTERIALS FOR SYSTEMIC USE (ANTIBACTERIALS FOR SYSTEMIC USE) [Concomitant]

REACTIONS (9)
  - ABDOMINAL PAIN UPPER [None]
  - AGEUSIA [None]
  - BLEPHARAL PIGMENTATION [None]
  - HAIR COLOUR CHANGES [None]
  - HYPOAESTHESIA ORAL [None]
  - LENTIGO [None]
  - MENTAL IMPAIRMENT [None]
  - OCULAR HYPERAEMIA [None]
  - SWELLING FACE [None]
